FAERS Safety Report 19384773 (Version 1)
Quarter: 2021Q2

REPORT INFORMATION
  Report Type: Spontaneous
  Country: DE (occurrence: DE)
  Receive Date: 20210608
  Receipt Date: 20210608
  Transmission Date: 20210717
  Serious: Yes (Hospitalization)
  Sender: FDA-Public Use
  Company Number: DE-NOVOPROD-817253

PATIENT
  Age: 62 Year
  Sex: Female

DRUGS (9)
  1. MOXONIDIN 1 A PHARM [Concomitant]
     Dosage: 4 MG, 1?0?0?0, TABLETTEN
     Route: 048
  2. LANSOPRAZOL 1 A PHARMA [Concomitant]
     Dosage: 30 MG, 1?0?0?0
     Route: 048
  3. ATORVASTATIN CALCIUM. [Concomitant]
     Active Substance: ATORVASTATIN CALCIUM
     Dosage: 10 MG, 0?0?1?0
     Route: 048
  4. LEVEMIR [Suspect]
     Active Substance: INSULIN DETEMIR
     Indication: PRODUCT USED FOR UNKNOWN INDICATION
     Dosage: 36 IE, 0?0?1?0
     Route: 058
  5. JARDIANCE [Suspect]
     Active Substance: EMPAGLIFLOZIN
     Indication: PRODUCT USED FOR UNKNOWN INDICATION
     Dosage: 10 MG, 1?0?0?0
     Route: 048
  6. TRULICITY [Suspect]
     Active Substance: DULAGLUTIDE
     Indication: PRODUCT USED FOR UNKNOWN INDICATION
     Dosage: 1.5 MG
     Route: 058
  7. L?THYROX [Concomitant]
     Active Substance: LEVOTHYROXINE SODIUM
     Dosage: 75 ???G, 1?0?0?0
     Route: 048
  8. NEBIVOLOL AL 5MG [Concomitant]
     Dosage: 5 MG, 1?0?0?0, TABLETTEN
     Route: 048
  9. VALSARTAN?1A PHARMA 320MG [Concomitant]
     Dosage: 320 MG, 1?0?0?0, TABLETTEN
     Route: 048

REACTIONS (2)
  - Hyperglycaemia [Unknown]
  - Erysipelas [Unknown]
